FAERS Safety Report 6334467-9 (Version None)
Quarter: 2009Q3

REPORT INFORMATION
  Report Type: 
  Country: None (occurrence: None)
  Receive Date: 20090827
  Receipt Date: 20090814
  Transmission Date: 20100115
  Serious: Yes (Other)
  Sender: FDA-Public Use
  Company Number: AXC-2009-000011

PATIENT
  Age: 42 Year
  Sex: Female

DRUGS (5)
  1. MESALAMINE [Suspect]
     Indication: COLITIS ULCERATIVE
     Dates: start: 20050501
  2. BALSALAZIDE (BALSALAZIDE) [Suspect]
     Indication: COLITIS ULCERATIVE
     Dates: start: 20040801
  3. ASPIRIN [Suspect]
     Indication: DRUG USE FOR UNKNOWN INDICATION
     Dates: start: 20050101
  4. METOPROLOL TARTRATE [Concomitant]
  5. SPIRONOLACTONE [Concomitant]

REACTIONS (3)
  - CUTANEOUS VASCULITIS [None]
  - GRANULOMA SKIN [None]
  - TREATMENT FAILURE [None]
